FAERS Safety Report 5395236-X (Version None)
Quarter: 2007Q3

REPORT INFORMATION
  Report Type: 
  Country: None (occurrence: None)
  Receive Date: 20070724
  Receipt Date: 20070710
  Transmission Date: 20080115
  Serious: Yes (Hospitalization, Other)
  Sender: FDA-Public Use
  Company Number: US-ELI_LILLY_AND_COMPANY-USA0510111857

PATIENT
  Age: 66 Year
  Sex: Female
  Weight: 47.619 kg

DRUGS (4)
  1. FORTEO [Suspect]
     Dosage: UNK, UNK
     Dates: start: 20051001
  2. FORTEO [Suspect]
     Dosage: UNK, UNKNOWN
     Dates: start: 20050903, end: 20051001
  3. SYNTHROID [Concomitant]
     Dosage: 0.05 UNK, UNKNOWN
  4. FOSAMAX [Concomitant]
     Dosage: UNK, UNKNOWN

REACTIONS (13)
  - BLOOD PRESSURE DECREASED [None]
  - BLOOD PRESSURE INCREASED [None]
  - BLOOD THYROID STIMULATING HORMONE DECREASED [None]
  - BREAST PAIN [None]
  - CARDIAC DISORDER [None]
  - CHEST DISCOMFORT [None]
  - CHEST PAIN [None]
  - DEPRESSION [None]
  - DYSPEPSIA [None]
  - ELECTROCARDIOGRAM ABNORMAL [None]
  - KIDNEY INFECTION [None]
  - MYOCARDIAL INFARCTION [None]
  - RENAL FAILURE CHRONIC [None]
